FAERS Safety Report 7678406-7 (Version None)
Quarter: 2011Q3

REPORT INFORMATION
  Report Type: 
  Country: None (occurrence: None)
  Receive Date: 20110811
  Receipt Date: 20110729
  Transmission Date: 20111222
  Serious: Yes (Death)
  Sender: FDA-Public Use
  Company Number: US-PFIZER INC-2011173521

PATIENT
  Age: 22 Year
  Sex: Female

DRUGS (4)
  1. ACETAMINOPHEN [Suspect]
  2. IBUPROFEN [Suspect]
     Indication: PRODUCT USED FOR UNKNOWN INDICATION
  3. SUBUTEX [Suspect]
     Indication: PRODUCT USED FOR UNKNOWN INDICATION
  4. HYDROCODONE [Suspect]
     Indication: PRODUCT USED FOR UNKNOWN INDICATION

REACTIONS (2)
  - TOXICITY TO VARIOUS AGENTS [None]
  - HEPATIC NECROSIS [None]
